FAERS Safety Report 23922760 (Version 2)
Quarter: 2024Q3

REPORT INFORMATION
  Report Type: Spontaneous
  Country: SG (occurrence: SG)
  Receive Date: 20240531
  Receipt Date: 20240708
  Transmission Date: 20241017
  Serious: Yes (Death)
  Sender: ROCHE
  Company Number: SG-ROCHE-3572642

PATIENT
  Age: 72 Year
  Sex: Female
  Weight: 60 kg

DRUGS (1)
  1. PHESGO [Suspect]
     Active Substance: HYALURONIDASE-ZZXF\PERTUZUMAB\TRASTUZUMAB
     Indication: Breast cancer
     Route: 065

REACTIONS (1)
  - Death [Fatal]

NARRATIVE: CASE EVENT DATE: 20240528
